FAERS Safety Report 9806406 (Version 2)
Quarter: 2014Q2

REPORT INFORMATION
  Report Type: Spontaneous
  Country: US (occurrence: US)
  Receive Date: 20140109
  Receipt Date: 20140429
  Transmission Date: 20141212
  Serious: No
  Sender: FDA-Public Use
  Company Number: US-009507513-1401USA003417

PATIENT
  Sex: Female
  Weight: 68.27 kg

DRUGS (1)
  1. OXYTROL FOR WOMEN [Suspect]
     Indication: POLLAKIURIA
     Dosage: UNK, QW
     Route: 062
     Dates: start: 201311, end: 201312

REACTIONS (2)
  - Inappropriate schedule of drug administration [Unknown]
  - Drug ineffective [Unknown]
